FAERS Safety Report 8251666-X (Version None)
Quarter: 2012Q2

REPORT INFORMATION
  Report Type: 
  Country: None (occurrence: None)
  Receive Date: 20120402
  Receipt Date: 20120217
  Transmission Date: 20120825
  Serious: No
  Sender: FDA-Public Use
  Company Number: US-ABBOTT-12P-163-0897601-00

PATIENT
  Sex: Male
  Weight: 113.5 kg

DRUGS (2)
  1. PRAVACHOL [Suspect]
     Indication: BLOOD CHOLESTEROL
     Dates: end: 20111101
  2. ANDROGEL [Suspect]
     Indication: BLOOD TESTOSTERONE DECREASED
     Dosage: 3 PUMPS PER DAY
     Dates: start: 20111101

REACTIONS (2)
  - LIVER FUNCTION TEST ABNORMAL [None]
  - LOW DENSITY LIPOPROTEIN INCREASED [None]
